FAERS Safety Report 24443750 (Version 1)
Quarter: 2024Q4

REPORT INFORMATION
  Report Type: Report from Study
  Country: DK (occurrence: DK)
  Receive Date: 20241016
  Receipt Date: 20241016
  Transmission Date: 20250115
  Serious: Yes (Hospitalization)
  Sender: SANOFI AVENTIS
  Company Number: DK-SA-2017SA047038

PATIENT
  Age: 31 Year
  Sex: Female
  Weight: 101 kg

DRUGS (19)
  1. ALEMTUZUMAB [Suspect]
     Active Substance: ALEMTUZUMAB
     Indication: Relapsing-remitting multiple sclerosis
     Dosage: 12 MG,QD
     Route: 041
     Dates: start: 20170206, end: 20170210
  2. ALEMTUZUMAB [Suspect]
     Active Substance: ALEMTUZUMAB
     Dosage: 12 MG, QD
     Route: 041
     Dates: start: 20180620, end: 20180622
  3. ELIDEL [Concomitant]
     Active Substance: PIMECROLIMUS
     Indication: Psoriasis
     Dosage: 1 %,BID
     Route: 061
     Dates: start: 20170203
  4. VITAMIN D3 [Concomitant]
     Active Substance: CHOLECALCIFEROL
     Indication: Prophylaxis
     Dosage: 35 UG, QD
     Route: 048
     Dates: start: 20150216
  5. PIKASOL GI 60 [Concomitant]
     Indication: Nutritional supplementation
     Dosage: 1 G,BID
     Route: 048
     Dates: start: 20161001
  6. PIKASOL GI 60 [Concomitant]
     Dosage: 4 DF, QD
     Route: 048
     Dates: start: 20141218
  7. UNIKALK BASIC [Concomitant]
     Indication: Mineral supplementation
     Dosage: 400 MG,BID
     Route: 048
     Dates: start: 20161003
  8. UNIKALK BASIC [Concomitant]
     Dosage: 2 DF, QD
     Route: 048
     Dates: start: 20141218
  9. PANTOPRAZOLE SODIUM [Concomitant]
     Active Substance: PANTOPRAZOLE SODIUM
     Indication: Prophylaxis
     Dosage: 20 MG,QD
     Route: 048
     Dates: start: 20170206, end: 20170213
  10. ACETAMINOPHEN [Concomitant]
     Active Substance: ACETAMINOPHEN
     Indication: Influenza like illness
     Dosage: 1 G,QID
     Route: 048
     Dates: start: 20170206, end: 20170211
  11. FEXOFENADINE [Concomitant]
     Active Substance: FEXOFENADINE HYDROCHLORIDE
     Indication: Prophylaxis
     Dosage: 180 MG,QD
     Route: 048
     Dates: start: 20170206, end: 20170213
  12. VALACYCLOVIR HYDROCHLORIDE [Concomitant]
     Active Substance: VALACYCLOVIR HYDROCHLORIDE
     Indication: Antiviral prophylaxis
     Dosage: 500 MG,BID
     Route: 048
     Dates: start: 20170130, end: 20170306
  13. ZOPICLONE [Concomitant]
     Active Substance: ZOPICLONE
     Indication: Insomnia
     Dosage: 7.5 MG,QD
     Route: 048
     Dates: start: 20170206, end: 20170211
  14. SOLU-MEDROL [Concomitant]
     Active Substance: METHYLPREDNISOLONE SODIUM SUCCINATE
     Indication: Prophylaxis
     Dosage: 125 MG,1X
     Route: 042
     Dates: start: 20170206, end: 20170206
  15. FOLINSYRE SAD [FOLIC ACID] [Concomitant]
     Indication: Vitamin supplementation
     Dosage: 5 MG,QW
     Route: 048
     Dates: start: 20161001
  16. FOLIC ACID [Concomitant]
     Active Substance: FOLIC ACID
     Indication: Vitamin supplementation
     Dosage: 5 MG, QW
     Route: 048
     Dates: start: 20161001
  17. VAXIGRIP [Concomitant]
     Active Substance: INFLUENZA VIRUS VACCINE
     Indication: Influenza
     Dosage: .5 ML,1X
     Route: 058
  18. FERRO FUMARAT [Concomitant]
     Indication: Mineral supplementation
     Dosage: 3 DF, QD
     Route: 048
     Dates: start: 20170807
  19. LONGOVITAL [Concomitant]
     Indication: Vitamin supplementation
     Dosage: 1 DF, QD
     Route: 048
     Dates: start: 20141218

REACTIONS (15)
  - Uhthoff^s phenomenon [Recovered/Resolved]
  - Placental insufficiency [Recovered/Resolved]
  - Pyrexia [Recovered/Resolved]
  - Pregnancy [Recovered/Resolved]
  - Nausea [Recovered/Resolved]
  - Insomnia [Recovered/Resolved]
  - Vomiting [Recovered/Resolved]
  - Restlessness [Recovered/Resolved]
  - Urinary retention [Recovered/Resolved]
  - Urge incontinence [Recovered/Resolved]
  - Anal incontinence [Recovered/Resolved]
  - Sensory loss [Not Recovered/Not Resolved]
  - Lhermitte^s sign [Recovered/Resolved]
  - Diarrhoea [Recovered/Resolved]
  - Nausea [Recovered/Resolved]

NARRATIVE: CASE EVENT DATE: 20170206
